FAERS Safety Report 26183891 (Version 1)
Quarter: 2025Q4

REPORT INFORMATION
  Report Type: Spontaneous
  Country: CN (occurrence: CN)
  Receive Date: 20251222
  Receipt Date: 20251222
  Transmission Date: 20260118
  Serious: Yes (Other)
  Sender: BAXTER
  Company Number: None

PATIENT
  Age: 69 Year
  Sex: Female
  Weight: 55 kg

DRUGS (4)
  1. CYCLOPHOSPHAMIDE [Suspect]
     Active Substance: CYCLOPHOSPHAMIDE
     Indication: Breast cancer female
     Dosage: 0.8 G, EVERY 3 WK (INTRAPUMP INJECTION)
     Route: 065
     Dates: start: 20250917, end: 20251210
  2. DOCETAXEL [Suspect]
     Active Substance: DOCETAXEL
     Indication: Breast cancer female
     Dosage: 100 MG, EVERY 3 WK
     Route: 041
     Dates: start: 20250917, end: 20251210
  3. SODIUM CHLORIDE [Suspect]
     Active Substance: SODIUM CHLORIDE
     Indication: Medication dilution
     Dosage: 50 ML, EVERY 3 WK (CYCLOPHOSPHAMIDE + 0.9% SODIUM CHLORIDE)
     Route: 065
     Dates: start: 20250917, end: 20251210
  4. SODIUM CHLORIDE [Suspect]
     Active Substance: SODIUM CHLORIDE
     Dosage: 250 ML, EVERY 3 WK (DOCETAXEL + 0.9% SODIUM CHLORIDE)
     Route: 041
     Dates: start: 20250917, end: 20251210

REACTIONS (2)
  - Dyskinesia [Unknown]
  - Oedema peripheral [Unknown]

NARRATIVE: CASE EVENT DATE: 20251210
